FAERS Safety Report 6112050-8 (Version None)
Quarter: 2009Q1

REPORT INFORMATION
  Report Type: 
  Country: None (occurrence: None)
  Receive Date: 20090311
  Receipt Date: 20090227
  Transmission Date: 20090719
  Serious: Yes (Other)
  Sender: FDA-Public Use
  Company Number: CA-PFIZER INC-2009179893

PATIENT

DRUGS (5)
  1. ZOLOFT [Suspect]
     Route: 048
     Dates: start: 20080801
  2. PREVACID [Concomitant]
  3. ADVAIR HFA [Concomitant]
  4. ARTHROTEC [Concomitant]
  5. ZOPICLONE [Concomitant]

REACTIONS (1)
  - BRAIN NEOPLASM [None]
